FAERS Safety Report 21114285 (Version 1)
Quarter: 2022Q3

REPORT INFORMATION
  Report Type: Spontaneous
  Country: US (occurrence: US)
  Receive Date: 20220721
  Receipt Date: 20220721
  Transmission Date: 20221027
  Serious: Yes (Hospitalization)
  Sender: FDA-Public Use
  Company Number: US-PARI RESPIRATORY EQUIPMENT, INC.-2022PAR00046

PATIENT
  Sex: Male

DRUGS (5)
  1. KITABIS PAK [Suspect]
     Active Substance: TOBRAMYCIN
     Indication: Cystic fibrosis
     Dosage: 5 ML (300 MG TOTAL) VIA NEBULIZER, 2X/DAY FOR 28 DAYS ON AND 28 DAYS OFF
     Dates: start: 20210522
  2. PULMOZYME [Concomitant]
     Active Substance: DORNASE ALFA
  3. SYNAGIS [Concomitant]
     Active Substance: PALIVIZUMAB
  4. SYNAGIS [Concomitant]
     Active Substance: PALIVIZUMAB
  5. TRIKAFTA [Concomitant]
     Active Substance: ELEXACAFTOR\IVACAFTOR\TEZACAFTOR

REACTIONS (1)
  - Infection [Unknown]

NARRATIVE: CASE EVENT DATE: 20220101
